FAERS Safety Report 9524357 (Version 1)
Quarter: 2013Q3

REPORT INFORMATION
  Report Type: Spontaneous
  Country: US (occurrence: US)
  Receive Date: 20130916
  Receipt Date: 20130916
  Transmission Date: 20140515
  Serious: No
  Sender: FDA-Public Use
  Company Number: US-MYLANLABS-2012S1022019

PATIENT
  Age: 65 Year
  Sex: Male

DRUGS (3)
  1. VERAPAMIL HYDROCHLORIDE EXTENDED-RELEASE CAPSULES (PM) [Suspect]
     Indication: ARRHYTHMIA
     Route: 048
     Dates: start: 20111114, end: 20121019
  2. VERAPAMIL HYDROCHLORIDE EXTENDED-RELEASE CAPSULES (PM) [Suspect]
     Indication: BLOOD PRESSURE
     Route: 048
     Dates: start: 20111114, end: 20121019
  3. MICARDIS [Concomitant]
     Route: 048

REACTIONS (2)
  - Drug ineffective for unapproved indication [Recovered/Resolved]
  - Arrhythmia [Recovered/Resolved]
